FAERS Safety Report 23076926 (Version 2)
Quarter: 2023Q4

REPORT INFORMATION
  Report Type: Report from Study
  Country: JP (occurrence: JP)
  Receive Date: 20231018
  Receipt Date: 20231020
  Transmission Date: 20240110
  Serious: Yes (Death, Hospitalization)
  Sender: FDA-Public Use
  Company Number: JP-NBI-J202210438BIPI

PATIENT
  Age: 48 Year
  Sex: Male
  Weight: 66.7 kg

DRUGS (1)
  1. OFEV [Suspect]
     Active Substance: NINTEDANIB
     Indication: Interstitial lung disease
     Route: 048
     Dates: start: 20211014, end: 20230825

REACTIONS (3)
  - Cor pulmonale [Fatal]
  - Renal impairment [Unknown]
  - Oedema peripheral [Recovered/Resolved]

NARRATIVE: CASE EVENT DATE: 20211020
